FAERS Safety Report 13943991 (Version 1)
Quarter: 2017Q3

REPORT INFORMATION
  Report Type: Spontaneous
  Country: US (occurrence: US)
  Receive Date: 20170907
  Receipt Date: 20170907
  Transmission Date: 20171128
  Serious: No
  Sender: FDA-Public Use
  Company Number: US-ROCHE-1421598

PATIENT
  Sex: Female

DRUGS (5)
  1. SOLU-MEDROL [Concomitant]
     Active Substance: METHYLPREDNISOLONE SODIUM SUCCINATE
     Indication: CHRONIC LYMPHOCYTIC LEUKAEMIA
     Dosage: IN 0.9% SODIUM CHLORIDE
     Route: 065
     Dates: start: 200912, end: 201002
  2. BENADRYL [Concomitant]
     Active Substance: DIPHENHYDRAMINE HYDROCHLORIDE
     Indication: PREMEDICATION
     Route: 065
  3. TYLENOL [Concomitant]
     Active Substance: ACETAMINOPHEN
     Indication: PREMEDICATION
     Route: 065
  4. TAGAMET [Concomitant]
     Active Substance: CIMETIDINE
     Indication: PREMEDICATION
     Route: 042
  5. RITUXAN [Suspect]
     Active Substance: RITUXIMAB
     Indication: CHRONIC LYMPHOCYTIC LEUKAEMIA
     Dosage: FOR 3 OR 4 DAYS, D/C, IN 0.9% SODIUM CHLORIDE
     Route: 065
     Dates: start: 200912, end: 201002

REACTIONS (5)
  - Blood immunoglobulin G decreased [Unknown]
  - Immunodeficiency [Not Recovered/Not Resolved]
  - Neutrophil count decreased [Unknown]
  - Disease recurrence [Not Recovered/Not Resolved]
  - Chills [Recovered/Resolved]
